FAERS Safety Report 16647905 (Version 1)
Quarter: 2019Q3

REPORT INFORMATION
  Report Type: Spontaneous
  Country: US (occurrence: US)
  Receive Date: 20190729
  Receipt Date: 20190729
  Transmission Date: 20191004
  Serious: Yes (Other)
  Sender: FDA-Public Use
  Company Number: None

PATIENT
  Age: 7 Week
  Sex: Male

DRUGS (4)
  1. TACROMILUS [Suspect]
     Active Substance: TACROLIMUS
     Indication: RENAL TRANSPLANT
  2. CELLCEPT [Concomitant]
     Active Substance: MYCOPHENOLATE MOFETIL\MYCOPHENOLATE MOFETIL HYDROCHLORIDE
  3. VITAMIN D [Concomitant]
     Active Substance: VITAMIN D NOS
  4. PREDNISONE. [Concomitant]
     Active Substance: PREDNISONE

REACTIONS (3)
  - Schizophrenia [None]
  - Psychotic disorder [None]
  - Homicide [None]

NARRATIVE: CASE EVENT DATE: 20190603
